FAERS Safety Report 4368843-0 (Version None)
Quarter: 2004Q2

REPORT INFORMATION
  Report Type: 
  Country: None (occurrence: None)
  Receive Date: 20040601
  Receipt Date: 20040601
  Transmission Date: 20050107
  Serious: Yes (Life-Threatening)
  Sender: FDA-Public Use
  Company Number: None

PATIENT
  Sex: Male
  Weight: 35.3 kg

DRUGS (1)
  1. ETOPOSIDE [Suspect]
     Indication: EWING'S SARCOMA
     Dosage: 110 MG IV Q 24 HRS
     Route: 042
     Dates: start: 20030731, end: 20030804

REACTIONS (2)
  - MYELODYSPLASTIC SYNDROME [None]
  - PANCYTOPENIA [None]
